FAERS Safety Report 13960249 (Version 1)
Quarter: 2017Q3

REPORT INFORMATION
  Report Type: Report from Study
  Country: JP (occurrence: JP)
  Receive Date: 20170912
  Receipt Date: 20170912
  Transmission Date: 20171128
  Serious: Yes (Hospitalization)
  Sender: FDA-Public Use
  Company Number: JP-ACTELION-A-CH2017-159055

PATIENT
  Age: 74 Year
  Sex: Female

DRUGS (13)
  1. OPSUMIT [Suspect]
     Active Substance: MACITENTAN
     Indication: PULMONARY HYPERTENSION
     Dosage: 10 MG, QD
     Route: 048
     Dates: start: 20160713
  2. PURSENNIDE [Concomitant]
     Active Substance: SENNOSIDES A AND B
  3. LENDORMIN [Concomitant]
     Active Substance: BROTIZOLAM
  4. LUPRAC [Concomitant]
     Active Substance: TORSEMIDE
  5. ADCIRCA [Concomitant]
     Active Substance: TADALAFIL
  6. FEBURIC [Concomitant]
     Active Substance: FEBUXOSTAT
  7. ALDACTONE A [Concomitant]
     Active Substance: SPIRONOLACTONE
  8. WARFARIN [Concomitant]
     Active Substance: WARFARIN
  9. ZYLORIC [Concomitant]
     Active Substance: ALLOPURINOL
  10. TAKEPRON [Concomitant]
     Active Substance: LANSOPRAZOLE
  11. ANCARON [Concomitant]
     Active Substance: AMIODARONE HYDROCHLORIDE
  12. LASIX [Concomitant]
     Active Substance: FUROSEMIDE
  13. OXYGEN. [Concomitant]
     Active Substance: OXYGEN

REACTIONS (2)
  - Peritoneal haematoma [Recovering/Resolving]
  - Atrial flutter [Recovered/Resolved]

NARRATIVE: CASE EVENT DATE: 20160901
